FAERS Safety Report 21351096 (Version 3)
Quarter: 2022Q4

REPORT INFORMATION
  Report Type: Report from Study
  Country: CN (occurrence: CN)
  Receive Date: 20220919
  Receipt Date: 20221216
  Transmission Date: 20230113
  Serious: Yes (Hospitalization)
  Sender: FDA-Public Use
  Company Number: CN-PFIZER INC-PV202200062500

PATIENT
  Age: 41 Year
  Sex: Male
  Weight: 85 kg

DRUGS (4)
  1. EPIRUBICIN HYDROCHLORIDE [Suspect]
     Active Substance: EPIRUBICIN HYDROCHLORIDE
     Indication: Hepatic cancer
     Dosage: 20 MG, INTRALESIONAL DRUG INJECTION
     Route: 026
     Dates: start: 20220729, end: 20220729
  2. LIPIODOL [Concomitant]
     Active Substance: ETHIODIZED OIL
     Dosage: 10 ML
     Dates: start: 20220729, end: 20220729
  3. MAGNESIUM ISOGLYCYRRHIZINATE [Concomitant]
     Active Substance: MAGNESIUM ISOGLYCYRRHIZINATE
     Indication: Hepatobiliary disorder prophylaxis
     Dosage: UNK
     Dates: start: 20220729, end: 20220802
  4. ADEMETIONINE [Concomitant]
     Active Substance: ADEMETIONINE
     Indication: Hepatobiliary disorder prophylaxis
     Dosage: UNK
     Dates: start: 20220729, end: 20220802

REACTIONS (2)
  - Abdominal pain [Not Recovered/Not Resolved]
  - Asthenia [Not Recovered/Not Resolved]

NARRATIVE: CASE EVENT DATE: 20220830
